FAERS Safety Report 9243018 (Version 2)
Quarter: 2013Q3

REPORT INFORMATION
  Report Type: Spontaneous
  Country: US (occurrence: US)
  Receive Date: 20130419
  Receipt Date: 20130805
  Transmission Date: 20140515
  Serious: Yes (Hospitalization, Other)
  Sender: FDA-Public Use
  Company Number: US-009507513-1304USA007422

PATIENT
  Sex: Female
  Weight: 61.22 kg

DRUGS (3)
  1. NUVARING [Suspect]
     Indication: CONTRACEPTION
     Dosage: 1 DF, QM
     Route: 067
     Dates: start: 20090305, end: 20110425
  2. NUVARING [Suspect]
     Indication: MENSTRUATION IRREGULAR
  3. PREDNISONE [Concomitant]
     Indication: ASTHMA
     Dosage: UNK
     Dates: start: 200602

REACTIONS (21)
  - Pulmonary embolism [Unknown]
  - Deep vein thrombosis [Unknown]
  - Cholelithiasis [Unknown]
  - Chest pain [Unknown]
  - Dyspnoea [Unknown]
  - Pulmonary embolism [Unknown]
  - Local swelling [Unknown]
  - Menorrhagia [Unknown]
  - Endometrial ablation [Unknown]
  - Off label use [Recovered/Resolved]
  - Pain [Unknown]
  - Dyspnoea [Unknown]
  - Gastrooesophageal reflux disease [Unknown]
  - Infection [Unknown]
  - Joint dislocation [Unknown]
  - Lung infection [Unknown]
  - Chest pain [Unknown]
  - Pain in extremity [Unknown]
  - Chest pain [Unknown]
  - Depression [Unknown]
  - Stress [Unknown]
